FAERS Safety Report 25328762 (Version 1)
Quarter: 2025Q2

REPORT INFORMATION
  Report Type: Spontaneous
  Country: TR (occurrence: TR)
  Receive Date: 20250519
  Receipt Date: 20250519
  Transmission Date: 20250716
  Serious: Yes (Death)
  Sender: ABBVIE
  Company Number: TR-ABBVIE-6286729

PATIENT
  Age: 28 Year
  Sex: Male

DRUGS (1)
  1. RINVOQ [Suspect]
     Active Substance: UPADACITINIB
     Indication: Crohn^s disease
     Route: 048
     Dates: start: 20240517, end: 202504

REACTIONS (4)
  - Cardiac failure [Fatal]
  - Influenza [Unknown]
  - Serum sickness [Fatal]
  - Malaise [Unknown]

NARRATIVE: CASE EVENT DATE: 20250401
